FAERS Safety Report 18321198 (Version 2)
Quarter: 2020Q4

REPORT INFORMATION
  Report Type: Spontaneous
  Country: JP (occurrence: JP)
  Receive Date: 20200929
  Receipt Date: 20201013
  Transmission Date: 20210113
  Serious: Yes (Other)
  Sender: FDA-Public Use
  Company Number: JP-TEVA-2020-JP-006064J

PATIENT
  Age: 70 Year
  Sex: Male

DRUGS (1)
  1. GRANISETRON INTRAVENOUS INFUSION BAG 1MG/50ML TEVA [Suspect]
     Active Substance: GRANISETRON HYDROCHLORIDE
     Indication: PRODUCT USED FOR UNKNOWN INDICATION
     Dosage: DOSAGE IS UNKNOWN; FORM STRENGTH: 1MG/50ML
     Route: 041

REACTIONS (2)
  - Hallucination [Recovered/Resolved]
  - Hallucination, visual [Recovered/Resolved]
